FAERS Safety Report 6596607-6 (Version None)
Quarter: 2010Q1

REPORT INFORMATION
  Report Type: 
  Country: None (occurrence: None)
  Receive Date: 20100222
  Receipt Date: 20100222
  Transmission Date: 20100710
  Serious: Yes (Life-Threatening, Other)
  Sender: FDA-Public Use
  Company Number: None

PATIENT
  Age: 14 Year
  Sex: Male
  Weight: 72.5755 kg

DRUGS (2)
  1. INTUNIV [Suspect]
     Indication: ATTENTION DEFICIT/HYPERACTIVITY DISORDER
     Dosage: 1 MG FOR 1ST WEEK NIGHTLY PO
     Route: 048
     Dates: start: 20100208, end: 20100214
  2. INTUNIV [Suspect]
     Dosage: 2MG SECOND WEEK NIGHTLY PO
     Route: 048
     Dates: start: 20100215, end: 20100216

REACTIONS (4)
  - DIZZINESS [None]
  - DRUG INTERACTION [None]
  - FEELING ABNORMAL [None]
  - SOMNOLENCE [None]
